FAERS Safety Report 14317376 (Version 3)
Quarter: 2018Q1

REPORT INFORMATION
  Report Type: Spontaneous
  Country: CO (occurrence: CO)
  Receive Date: 20171222
  Receipt Date: 20180118
  Transmission Date: 20180509
  Serious: Yes (Other)
  Sender: FDA-Public Use
  Company Number: CO-JNJFOC-20171222992

PATIENT
  Age: 74 Year
  Sex: Male

DRUGS (1)
  1. HALOPERIDOL. [Suspect]
     Active Substance: HALOPERIDOL
     Indication: SCHIZOPHRENIA
     Dosage: 8-10 DROPS AT NIGHT
     Route: 065

REACTIONS (4)
  - Drooling [Unknown]
  - Drug dose omission [Unknown]
  - Facial paralysis [Unknown]
  - Somnolence [Unknown]
